FAERS Safety Report 6600881-7 (Version None)
Quarter: 2010Q1

REPORT INFORMATION
  Report Type: 
  Country: None (occurrence: None)
  Receive Date: 20100225
  Receipt Date: 20100125
  Transmission Date: 20100710
  Serious: No
  Sender: FDA-Public Use
  Company Number: A0838322A

PATIENT
  Age: 65 Year
  Sex: Male

DRUGS (19)
  1. LAMICTAL CD [Suspect]
     Indication: DEPRESSION
     Dosage: 25MG PER DAY
     Route: 048
     Dates: start: 20100102, end: 20100106
  2. ZYPREXA [Concomitant]
  3. CITALOPRAM HYDROBROMIDE [Concomitant]
  4. AMBIEN [Concomitant]
  5. BUSPAR [Concomitant]
  6. DIAZEPAM [Concomitant]
  7. MECLIZINE [Concomitant]
  8. GI COCKTAIL [Concomitant]
  9. SENNA [Concomitant]
  10. ZANTAC [Concomitant]
  11. CARDURA [Concomitant]
  12. UNKNOWN MEDICATION [Concomitant]
  13. LACTULOSE [Concomitant]
  14. METOPROLOL TARTRATE [Concomitant]
  15. CRESTOR [Concomitant]
  16. FLOMAX [Concomitant]
  17. CELEBREX [Concomitant]
  18. EYE OINTMENT [Concomitant]
  19. EYE DROPS [Concomitant]

REACTIONS (2)
  - RASH [None]
  - RASH PAPULAR [None]
